FAERS Safety Report 4866375-4 (Version None)
Quarter: 2005Q4

REPORT INFORMATION
  Report Type: 
  Country: None (occurrence: None)
  Receive Date: 20051227
  Receipt Date: 20050909
  Transmission Date: 20060501
  Serious: Yes (Hospitalization, Other)
  Sender: FDA-Public Use
  Company Number: US-MERCK-0509USA01687

PATIENT
  Age: 70 Year
  Sex: Male
  Weight: 90 kg

DRUGS (13)
  1. TOPROL-XL [Concomitant]
     Route: 065
     Dates: start: 20021028
  2. PEPCID [Concomitant]
     Route: 065
  3. ENALAPRIL MALEATE [Concomitant]
     Route: 065
  4. ACETAMINOPHEN AND HYDROCODONE BITARTRATE [Concomitant]
     Route: 065
  5. [THERAPY UNSPECIFIED] [Concomitant]
     Route: 065
  6. LEVAQUIN [Concomitant]
     Route: 065
  7. DICYCLOMINE HYDROCHLORIDE [Concomitant]
     Route: 065
  8. ASPIRIN [Concomitant]
     Route: 065
  9. VITAMINS (UNSPECIFIED) [Concomitant]
     Route: 065
  10. VIOXX [Suspect]
     Indication: OSTEOARTHRITIS
     Route: 048
     Dates: start: 20010701, end: 20040601
  11. HYDRODIURIL [Concomitant]
     Route: 065
  12. LESCOL [Concomitant]
     Route: 065
  13. DILTIAZEM MALATE [Concomitant]
     Route: 065

REACTIONS (7)
  - ACUTE MYOCARDIAL INFARCTION [None]
  - ANAEMIA [None]
  - ANGINA UNSTABLE [None]
  - BUNDLE BRANCH BLOCK RIGHT [None]
  - CAROTID ARTERY DISEASE [None]
  - CHEST PAIN [None]
  - RENAL FAILURE ACUTE [None]
